FAERS Safety Report 22598672 (Version 1)
Quarter: 2023Q2

REPORT INFORMATION
  Report Type: Spontaneous
  Country: JP (occurrence: JP)
  Receive Date: 20230614
  Receipt Date: 20230614
  Transmission Date: 20230721
  Serious: Yes (Death, Hospitalization, Other)
  Sender: FDA-Public Use
  Company Number: JP-AJANTA-2023AJA00126

PATIENT
  Age: 64 Year
  Sex: Male
  Weight: 73 kg

DRUGS (10)
  1. VORICONAZOLE [Suspect]
     Active Substance: VORICONAZOLE
     Indication: Aspergillus infection
  2. VORICONAZOLE [Suspect]
     Active Substance: VORICONAZOLE
  3. METHYLPREDNISOLONE [Concomitant]
     Active Substance: METHYLPREDNISOLONE
  4. OXYGEN [Concomitant]
     Active Substance: OXYGEN
     Indication: Hypoxia
  5. REMDESIVIR [Concomitant]
     Active Substance: REMDESIVIR
     Indication: COVID-19 pneumonia
  6. REMDESIVIR [Concomitant]
     Active Substance: REMDESIVIR
  7. DEXAMETHASONE [Concomitant]
     Active Substance: DEXAMETHASONE
     Indication: COVID-19 pneumonia
  8. BARICITINIB [Concomitant]
     Active Substance: BARICITINIB
     Indication: COVID-19 pneumonia
  9. EDOXABAN [Concomitant]
     Active Substance: EDOXABAN
     Indication: COVID-19 pneumonia
  10. HEPARIN [Concomitant]
     Active Substance: HEPARIN SODIUM
     Route: 042

REACTIONS (3)
  - Respiratory failure [Fatal]
  - Pneumothorax [Fatal]
  - Pulmonary embolism [Fatal]
